FAERS Safety Report 8501826-5 (Version None)
Quarter: 2012Q3

REPORT INFORMATION
  Report Type: 
  Country: None (occurrence: None)
  Receive Date: 20120705
  Receipt Date: 20120705
  Transmission Date: 20120928
  Serious: Yes (Hospitalization)
  Sender: FDA-Public Use
  Company Number: None

PATIENT
  Sex: Female

DRUGS (1)
  1. PRADAXA [Suspect]
     Indication: ANTICOAGULANT THERAPY
     Dosage: 150 MG TWICE A DAY PO
     Route: 048
     Dates: start: 20110915, end: 20110917

REACTIONS (4)
  - HAEMATOCHEZIA [None]
  - HAEMATEMESIS [None]
  - FATIGUE [None]
  - ABNORMAL FAECES [None]
